FAERS Safety Report 6446829-X (Version None)
Quarter: 2009Q4

REPORT INFORMATION
  Report Type: 
  Country: None (occurrence: None)
  Receive Date: 20091119
  Receipt Date: 20091112
  Transmission Date: 20100525
  Serious: Yes (Hospitalization, Other)
  Sender: FDA-Public Use
  Company Number: PHHO2009US11527

PATIENT
  Sex: Female
  Weight: 67.5 kg

DRUGS (1)
  1. STI571/CGP57148B T35717+TAB [Suspect]
     Indication: GASTROINTESTINAL STROMAL TUMOUR
     Dosage: 400 MG
     Route: 048
     Dates: start: 20090820

REACTIONS (5)
  - ABDOMINAL DISTENSION [None]
  - ASCITES [None]
  - DISEASE PROGRESSION [None]
  - DYSPNOEA [None]
  - PARACENTESIS [None]
